FAERS Safety Report 8829883 (Version 1)
Quarter: 2012Q4

REPORT INFORMATION
  Report Type: Spontaneous
  Country: US (occurrence: None)
  Receive Date: 20121004
  Receipt Date: 20121004
  Transmission Date: 20130627
  Serious: No
  Sender: FDA-Public Use
  Company Number: 2012AP003226

PATIENT
  Age: 61 Year
  Sex: Male

DRUGS (16)
  1. LISINOPRIL TABLETS [Suspect]
     Indication: DRUG USE FOR UNKNOWN INDICATION
  2. TUMS [Suspect]
     Indication: HEARTBURN
  3. VITAMIN D NOS [Suspect]
     Indication: DRUG USE FOR UNKNOWN INDICATION
  4. DESIPRARINE [Concomitant]
  5. DILTIAZEM [Concomitant]
  6. METFORMIN [Concomitant]
  7. HYDROCHLOROTHIAZIDE [Concomitant]
  8. LOVASTATIN [Concomitant]
  9. GLIPIZIDE [Concomitant]
  10. DEPAKOTE [Concomitant]
  11. JANUVIA [Concomitant]
  12. MIRAPEX [Concomitant]
  13. ZOLPIDEM [Concomitant]
  14. BUPROPION [Concomitant]
  15. UROXATRAL [Concomitant]
  16. COLECALCIFEROL [Concomitant]

REACTIONS (14)
  - Confusional state [None]
  - Mucosal dryness [None]
  - Hypercalcaemia [None]
  - Blood parathyroid hormone decreased [None]
  - Renal failure [None]
  - Metabolic alkalosis [None]
  - Sinus tachycardia [None]
  - Electrocardiogram ST-T change [None]
  - Arteriosclerosis coronary artery [None]
  - Nephrolithiasis [None]
  - Aortic calcification [None]
  - Prostatic calcification [None]
  - Overdose [None]
  - Haemodialysis [None]
